FAERS Safety Report 17145944 (Version 1)
Quarter: 2019Q4

REPORT INFORMATION
  Report Type: Spontaneous
  Country: AT (occurrence: AT)
  Receive Date: 20191212
  Receipt Date: 20191212
  Transmission Date: 20200122
  Serious: Yes (Hospitalization)
  Sender: FDA-Public Use
  Company Number: AT-TEVA-2019-AT-1148552

PATIENT
  Age: 71 Year
  Sex: Female

DRUGS (7)
  1. LISINOPRIL ACTAVIS 5 MG TABLETTEN [Suspect]
     Active Substance: LISINOPRIL
     Route: 065
     Dates: start: 20191106, end: 20191106
  2. SPIRIVA RESPIMAT 2,5 MIKROGRAMM-L?SUNG ZUR INHALATION [Concomitant]
     Route: 055
  3. LEXOTANIL 3MG [Concomitant]
     Route: 048
  4. BERODUAL-DOSIERAEROSOL [Concomitant]
  5. FOSTER 100/6 MIKROGRAMM/SPR?HSTO?, DRUCKGASINHALATION, L?SUNG [Concomitant]
     Route: 055
  6. ESCITALOPRAM GENERICON 20MG [Concomitant]
     Route: 048
  7. AQUA TEARS- AUGENGEL [Concomitant]
     Route: 047

REACTIONS (3)
  - Angioedema [Recovered/Resolved]
  - Tongue oedema [Recovered/Resolved]
  - Type I hypersensitivity [Recovered/Resolved]

NARRATIVE: CASE EVENT DATE: 20191106
